FAERS Safety Report 8245568-2 (Version None)
Quarter: 2012Q1

REPORT INFORMATION
  Report Type: 
  Country: None (occurrence: None)
  Receive Date: 20120329
  Receipt Date: 20120306
  Transmission Date: 20120608
  Serious: Yes (Other)
  Sender: FDA-Public Use
  Company Number: PHEH2011US04097

PATIENT
  Sex: Female

DRUGS (1)
  1. EXJADE [Suspect]
     Indication: IRON OVERLOAD
     Dosage: 125 MG, QD
     Route: 048
     Dates: start: 20110901

REACTIONS (8)
  - VISUAL IMPAIRMENT [None]
  - VISION BLURRED [None]
  - DIARRHOEA [None]
  - EYE HAEMORRHAGE [None]
  - MACULAR DEGENERATION [None]
  - BLINDNESS UNILATERAL [None]
  - TRICHORRHEXIS [None]
  - ALOPECIA [None]
